FAERS Safety Report 8435810-7 (Version None)
Quarter: 2012Q2

REPORT INFORMATION
  Report Type: 
  Country: None (occurrence: None)
  Receive Date: 20120614
  Receipt Date: 20120531
  Transmission Date: 20120825
  Serious: Yes (Other)
  Sender: FDA-Public Use
  Company Number: US-JNJCP-30000109835

PATIENT
  Age: 72 Year
  Sex: Female
  Weight: 59 kg

DRUGS (6)
  1. HERBAL VITAMIN [Concomitant]
     Dosage: DAILY
  2. NORVASC UNKNOWN DOSE [Concomitant]
     Indication: SCLERODERMA
     Dosage: DAILY
  3. ASPIRIN [Concomitant]
     Indication: SCLERODERMA
     Dosage: DAILY
  4. CVS ARTHRITIS CAPLETS-ACETAMINOPHEN 650MG [Concomitant]
     Indication: SCLERODERMA
     Dosage: ONCE DAILY
  5. AVEENOA? POSITIVELY A RADIANTA? TINTED MOISTURIZER SPF 30 MEDIUMA [Suspect]
     Dosage: A PEA SIZE EACH TO CHEEKS AND FOREHEAD, DAILY
     Route: 061
  6. PEPCID A C MS TABLETS [Concomitant]
     Dosage: TWICE DAILY SINCE ONE YEAR

REACTIONS (1)
  - SKIN CANCER [None]
